FAERS Safety Report 23074552 (Version 1)
Quarter: 2023Q4

REPORT INFORMATION
  Report Type: Spontaneous
  Country: None (occurrence: GB)
  Receive Date: 20231017
  Receipt Date: 20231017
  Transmission Date: 20240109
  Serious: Yes (Other)
  Sender: FDA-Public Use
  Company Number: GB-Ascend Therapeutics US, LLC-2147153

PATIENT
  Sex: Female

DRUGS (5)
  1. ESTROGEL [Suspect]
     Active Substance: ESTRADIOL
     Indication: Menopausal symptoms
     Route: 065
  2. ESTRADIOL [Suspect]
     Active Substance: ESTRADIOL
     Route: 065
  3. ESTRADIOL [Suspect]
     Active Substance: ESTRADIOL
     Route: 065
  4. ESTRADIOL [Concomitant]
     Active Substance: ESTRADIOL
     Route: 065
  5. PROGESTERONE [Concomitant]
     Active Substance: PROGESTERONE
     Route: 065

REACTIONS (6)
  - Cardiac flutter [Not Recovered/Not Resolved]
  - Hot flush [Not Recovered/Not Resolved]
  - Lethargy [Not Recovered/Not Resolved]
  - Disturbance in attention [Not Recovered/Not Resolved]
  - Migraine [Not Recovered/Not Resolved]
  - Packaging design issue [None]
